FAERS Safety Report 23990985 (Version 1)
Quarter: 2024Q2

REPORT INFORMATION
  Report Type: Spontaneous
  Country: US (occurrence: US)
  Receive Date: 20240619
  Receipt Date: 20240619
  Transmission Date: 20240716
  Serious: Yes (Other)
  Sender: FDA-Public Use
  Company Number: US-TEVA-VS-3209777

PATIENT
  Age: 31 Year
  Sex: Female

DRUGS (4)
  1. HYDROXYZINE [Suspect]
     Active Substance: HYDROXYZINE HYDROCHLORIDE
     Indication: Anxiety
     Route: 065
     Dates: start: 20220601
  2. RIZATRIPTAN [Suspect]
     Active Substance: RIZATRIPTAN
     Indication: Migraine
     Route: 065
     Dates: start: 20220601
  3. LEVOMILNACIPRAN [Suspect]
     Active Substance: LEVOMILNACIPRAN
     Indication: Depression
     Route: 065
     Dates: start: 20220601
  4. REXULTI [Suspect]
     Active Substance: BREXPIPRAZOLE
     Indication: Depression
     Dosage: DOSAGE: 1 MG/G
     Route: 065
     Dates: start: 20220601

REACTIONS (5)
  - Postpartum haemorrhage [Recovered/Resolved]
  - Gestational hypertension [Recovered/Resolved]
  - Induced labour [Recovered/Resolved]
  - Breech presentation [Unknown]
  - Live birth [Unknown]

NARRATIVE: CASE EVENT DATE: 20230301
